FAERS Safety Report 4591729-3 (Version None)
Quarter: 2005Q1

REPORT INFORMATION
  Report Type: 
  Country: None (occurrence: None)
  Receive Date: 20050218
  Receipt Date: 20050207
  Transmission Date: 20050727
  Serious: Yes (Hospitalization)
  Sender: FDA-Public Use
  Company Number: US-2005-001705

PATIENT
  Age: 29 Year
  Sex: Female
  Weight: 112.5 kg

DRUGS (1)
  1. MAGNEVIST [Suspect]
     Indication: NUCLEAR MAGNETIC RESONANCE IMAGING
     Dosage: 20 ML, 1 DOSE, INTRAVENOUS
     Route: 042
     Dates: start: 20050203, end: 20050203

REACTIONS (3)
  - CARDIO-RESPIRATORY ARREST [None]
  - CONTRAST MEDIA REACTION [None]
  - PROLACTINOMA [None]
